FAERS Safety Report 5067524-8 (Version None)
Quarter: 2006Q3

REPORT INFORMATION
  Report Type: 
  Country: None (occurrence: None)
  Receive Date: 20060731
  Receipt Date: 20060712
  Transmission Date: 20061208
  Serious: Yes (Hospitalization)
  Sender: FDA-Public Use
  Company Number: US200607002156

PATIENT
  Age: 75 Year
  Sex: Female

DRUGS (7)
  1. INSULIN [Suspect]
     Indication: BLOOD GLUCOSE INCREASED
     Dates: end: 20040101
  2. HUMALOG PEN [Suspect]
     Indication: BLOOD GLUCOSE INCREASED
     Dosage: 10 U, 3/D
     Dates: start: 20060711
  3. CYMBALTA [Suspect]
     Dates: start: 20060101, end: 20060101
  4. LANTUS [Concomitant]
  5. XANAX [Concomitant]
  6. METOLAZONE [Concomitant]
  7. HYZAAR [Concomitant]

REACTIONS (9)
  - ABDOMINAL PAIN UPPER [None]
  - BLOOD CHOLESTEROL INCREASED [None]
  - BLOOD GLUCOSE INCREASED [None]
  - COLON CANCER [None]
  - CRYING [None]
  - DEPRESSION [None]
  - MUSCLE SPASMS [None]
  - PHARMACEUTICAL PRODUCT COMPLAINT [None]
  - ULCER HAEMORRHAGE [None]
